FAERS Safety Report 11110033 (Version 1)
Quarter: 2015Q2

REPORT INFORMATION
  Report Type: Spontaneous
  Country: US (occurrence: None)
  Receive Date: 20150512
  Receipt Date: 20150512
  Transmission Date: 20150821
  Serious: No
  Sender: FDA-Public Use
  Company Number: None

PATIENT
  Age: 61 Year
  Sex: Male

DRUGS (5)
  1. LEVOTHYROXINE (LEVOTHROID/SYNTHROID) [Concomitant]
  2. CITALOPRAM (CELEXA) [Concomitant]
  3. INTERFERON BETA-1B (EXTAVIA) [Concomitant]
  4. AMPYRA [Suspect]
     Active Substance: DALFAMPRIDINE
     Indication: MULTIPLE SCLEROSIS
     Route: 048
     Dates: start: 20130801
  5. DEXTROMETHORPHAN-QUINDINE (NUEDEXTA) [Concomitant]

REACTIONS (2)
  - Blood thyroid stimulating hormone abnormal [None]
  - Laboratory test abnormal [None]

NARRATIVE: CASE EVENT DATE: 20150424
